FAERS Safety Report 11325588 (Version 1)
Quarter: 2015Q3

REPORT INFORMATION
  Report Type: Spontaneous
  Country: CA (occurrence: CA)
  Receive Date: 20150731
  Receipt Date: 20150731
  Transmission Date: 20151125
  Serious: Yes (Hospitalization)
  Sender: FDA-Public Use
  Company Number: CA-ROCHE-1615622

PATIENT
  Age: 64 Year
  Sex: Male

DRUGS (11)
  1. SYMBICORT [Concomitant]
     Active Substance: BUDESONIDE\FORMOTEROL FUMARATE DIHYDRATE
  2. ATORVASTATIN [Concomitant]
     Active Substance: ATORVASTATIN
  3. CLOPIDOGREL [Concomitant]
     Active Substance: CLOPIDOGREL BISULFATE
  4. COVERSYL [Concomitant]
     Active Substance: PERINDOPRIL
  5. PANTOPRAZOLE [Concomitant]
     Active Substance: PANTOPRAZOLE SODIUM
  6. UNIPHYL [Concomitant]
     Active Substance: THEOPHYLLINE ANHYDROUS
  7. XOLAIR [Suspect]
     Active Substance: OMALIZUMAB
     Indication: ASTHMA
     Route: 058
     Dates: start: 20140815
  8. AVAMYS [Concomitant]
     Active Substance: FLUTICASONE FUROATE
  9. ACETYLSALICYLIC ACID [Concomitant]
     Active Substance: ASPIRIN
  10. PERINDOPRIL [Concomitant]
     Active Substance: PERINDOPRIL
  11. FUROSEMIDE. [Concomitant]
     Active Substance: FUROSEMIDE

REACTIONS (9)
  - Blood pressure increased [Unknown]
  - Peripheral swelling [Unknown]
  - Fatigue [Unknown]
  - Asthma [Recovering/Resolving]
  - Blood pressure fluctuation [Unknown]
  - Contusion [Unknown]
  - Influenza [Recovered/Resolved]
  - Lung infection [Unknown]
  - Nasopharyngitis [Recovered/Resolved]

NARRATIVE: CASE EVENT DATE: 20141222
